FAERS Safety Report 14634484 (Version 1)
Quarter: 2018Q1

REPORT INFORMATION
  Report Type: Spontaneous
  Country: FR (occurrence: FR)
  Receive Date: 20180314
  Receipt Date: 20180314
  Transmission Date: 20180509
  Serious: Yes (Other)
  Sender: FDA-Public Use
  Company Number: FR-MERCK KGAA-2043673

PATIENT
  Age: 64 Year
  Sex: Female

DRUGS (1)
  1. NOVOTHYROX [Suspect]
     Active Substance: LEVOTHYROXINE SODIUM
     Indication: THYROIDECTOMY

REACTIONS (14)
  - Constipation [None]
  - Decreased interest [None]
  - Depression [None]
  - Chest pain [None]
  - Headache [None]
  - Heart rate increased [None]
  - Hot flush [None]
  - Abdominal pain upper [None]
  - Weight increased [None]
  - Cardiac disorder [None]
  - Fatigue [None]
  - Insomnia [None]
  - Anxiety [None]
  - Fear [None]
